FAERS Safety Report 17367084 (Version 1)
Quarter: 2020Q1

REPORT INFORMATION
  Report Type: Spontaneous
  Country: GB (occurrence: GB)
  Receive Date: 20200204
  Receipt Date: 20200204
  Transmission Date: 20200409
  Serious: Yes (Life-Threatening, Disabling, Other)
  Sender: FDA-Public Use
  Company Number: GB-JNJFOC-20200142089

PATIENT
  Sex: Female

DRUGS (2)
  1. RISPERDAL CONSTA [Suspect]
     Active Substance: RISPERIDONE
     Indication: PRODUCT USED FOR UNKNOWN INDICATION
     Route: 030
  2. FLUPENTIXOL HYDROCHLORIDE [Suspect]
     Active Substance: FLUPENTIXOL DIHYDROCHLORIDE
     Indication: PRODUCT USED FOR UNKNOWN INDICATION
     Route: 065

REACTIONS (26)
  - Skin odour abnormal [Unknown]
  - Mass [Unknown]
  - Nightmare [Unknown]
  - Sensory disturbance [Unknown]
  - Somnolence [Unknown]
  - Dry eye [Unknown]
  - Diarrhoea [Unknown]
  - Agitation [Unknown]
  - Sexual dysfunction [Unknown]
  - Bacterial infection [Unknown]
  - Neck pain [Unknown]
  - Urine odour abnormal [Unknown]
  - Eye disorder [Unknown]
  - Joint stiffness [Unknown]
  - Head injury [Unknown]
  - Eye pain [Unknown]
  - Hyperhidrosis [Unknown]
  - Fear [Unknown]
  - Viral infection [Unknown]
  - Sleep disorder [Unknown]
  - Spinal disorder [Unknown]
  - Foreign body sensation in eyes [Unknown]
  - Condition aggravated [Unknown]
  - Feeling abnormal [Unknown]
  - Constipation [Unknown]
  - Thirst [Unknown]

NARRATIVE: CASE EVENT DATE: 1980
